FAERS Safety Report 6064880-9 (Version None)
Quarter: 2009Q1

REPORT INFORMATION
  Report Type: 
  Country: None (occurrence: None)
  Receive Date: 20090121
  Receipt Date: 20080327
  Transmission Date: 20090719
  Serious: Yes (Other)
  Sender: FDA-Public Use
  Company Number: HQWYE634714JAN05

PATIENT
  Age: 53 Year
  Sex: Female

DRUGS (10)
  1. PREMPRO [Suspect]
  2. CLIMARA [Suspect]
  3. ESTRACE [Suspect]
  4. ESTRADERM [Suspect]
  5. ESTROGENS (ESTROGENS, ) [Suspect]
  6. MEDROXYPROGESTERONE [Suspect]
  7. ORTHO-EST [Suspect]
  8. PREMARIN [Suspect]
  9. PREMARIN [Suspect]
  10. PROVERA [Suspect]

REACTIONS (1)
  - BREAST CANCER [None]
